FAERS Safety Report 6631069-1 (Version None)
Quarter: 2010Q1

REPORT INFORMATION
  Report Type: 
  Country: None (occurrence: None)
  Receive Date: 20100309
  Receipt Date: 20100224
  Transmission Date: 20100710
  Serious: Yes (Hospitalization)
  Sender: FDA-Public Use
  Company Number: 238234K09USA

PATIENT
  Age: 39 Year
  Sex: Female
  Weight: 76 kg

DRUGS (7)
  1. REBIF [Suspect]
     Indication: MULTIPLE SCLEROSIS
     Dates: end: 20090101
  2. BACOFEN (BACLOFEN) [Concomitant]
  3. MIRAPEX [Concomitant]
  4. DANTROLENE SODIUM [Concomitant]
  5. PROVIGIL [Concomitant]
  6. PROZAC [Concomitant]
  7. OXYBUTYNIN CHLORIDE EXTENDED RELEASE (OXYBUTYNIN HYDROCHLORIDE) [Concomitant]

REACTIONS (6)
  - FATIGUE [None]
  - HYPERSOMNIA [None]
  - MALAISE [None]
  - MULTIPLE SCLEROSIS RELAPSE [None]
  - PARAPLEGIA [None]
  - WEIGHT DECREASED [None]
